FAERS Safety Report 9638639 (Version 1)
Quarter: 2013Q4

REPORT INFORMATION
  Report Type: Spontaneous
  Country: US (occurrence: US)
  Receive Date: 20131022
  Receipt Date: 20131022
  Transmission Date: 20140711
  Serious: Yes (Hospitalization)
  Sender: FDA-Public Use
  Company Number: US-BRISTOL-MYERS SQUIBB COMPANY-19411164

PATIENT
  Age: 82 Year
  Sex: Female
  Weight: 98.9 kg

DRUGS (7)
  1. ELIQUIS [Suspect]
     Dates: start: 201303
  2. ALLOPURINOL [Concomitant]
  3. DOCUSATE [Concomitant]
  4. GABAPENTIN [Concomitant]
  5. GLIPIZIDE [Concomitant]
  6. LEVOTHYROXINE [Concomitant]
  7. SIMVASTATIN [Concomitant]

REACTIONS (3)
  - Anaemia [Unknown]
  - Haematochezia [Unknown]
  - Haemoptysis [Unknown]
